FAERS Safety Report 9995963 (Version 2)
Quarter: 2014Q3

REPORT INFORMATION
  Report Type: Spontaneous
  Country: US (occurrence: US)
  Receive Date: 20140311
  Receipt Date: 20140703
  Transmission Date: 20150326
  Serious: Yes (Hospitalization)
  Sender: FDA-Public Use
  Company Number: US-BAYER-2014-035775

PATIENT
  Age: 32 Year
  Sex: Female
  Weight: 73 kg

DRUGS (6)
  1. NAPROSYN [Concomitant]
     Active Substance: NAPROXEN
  2. OCELLA [Suspect]
     Active Substance: DROSPIRENONE\ETHINYL ESTRADIOL
     Indication: PREMENSTRUAL DYSPHORIC DISORDER
     Dosage: UNK
     Dates: start: 2009
  3. ALLEGRA [Concomitant]
     Active Substance: FEXOFENADINE HYDROCHLORIDE
     Dosage: 180 MG, UNK
     Route: 048
  4. MAXZIDE [Concomitant]
     Active Substance: HYDROCHLOROTHIAZIDE\TRIAMTERENE
     Dosage: 25 MG, UNK
     Route: 048
  5. OCELLA [Suspect]
     Active Substance: DROSPIRENONE\ETHINYL ESTRADIOL
     Indication: PREMENSTRUAL DYSPHORIC DISORDER
     Dosage: UNK
     Dates: start: 2011
  6. DYAZIDE [Concomitant]
     Active Substance: HYDROCHLOROTHIAZIDE\TRIAMTERENE
     Dosage: 37.5-25 MG
     Route: 048

REACTIONS (9)
  - Injury [None]
  - Intracardiac thrombus [None]
  - Anxiety [None]
  - Abdominal pain [None]
  - General physical health deterioration [None]
  - Emotional distress [None]
  - Transient ischaemic attack [None]
  - Aortic thrombosis [None]
  - Pain [None]

NARRATIVE: CASE EVENT DATE: 20110222
